FAERS Safety Report 16996737 (Version 1)
Quarter: 2019Q4

REPORT INFORMATION
  Report Type: Report from Study
  Country: AT (occurrence: AT)
  Receive Date: 20191105
  Receipt Date: 20191105
  Transmission Date: 20200122
  Serious: Yes (Other)
  Sender: FDA-Public Use
  Company Number: AT-BAUSCH-BL-2019-058782

PATIENT
  Age: 41 Year
  Sex: Female

DRUGS (10)
  1. CIPRALEX [Interacting]
     Active Substance: ESCITALOPRAM OXALATE
     Route: 065
     Dates: start: 20190618, end: 20190622
  2. OLANZAPINE. [Interacting]
     Active Substance: OLANZAPINE
     Route: 065
     Dates: start: 20190627, end: 20190630
  3. CIPRALEX [Interacting]
     Active Substance: ESCITALOPRAM OXALATE
     Indication: PRODUCT USED FOR UNKNOWN INDICATION
     Route: 065
     Dates: start: 20190623, end: 20190718
  4. OLANZAPINE. [Interacting]
     Active Substance: OLANZAPINE
     Indication: PRODUCT USED FOR UNKNOWN INDICATION
     Route: 065
     Dates: start: 20190701, end: 20190704
  5. LORAZEPAM. [Suspect]
     Active Substance: LORAZEPAM
     Indication: PRODUCT USED FOR UNKNOWN INDICATION
     Route: 065
     Dates: start: 20190717, end: 20190815
  6. MIRTAZAPINE. [Interacting]
     Active Substance: MIRTAZAPINE
     Indication: PRODUCT USED FOR UNKNOWN INDICATION
     Route: 065
     Dates: start: 20190710, end: 20190711
  7. LORAZEPAM. [Interacting]
     Active Substance: LORAZEPAM
     Route: 065
     Dates: start: 20190617, end: 20190717
  8. MIRTAZAPINE. [Interacting]
     Active Substance: MIRTAZAPINE
     Route: 065
     Dates: start: 20190627, end: 20190709
  9. MIRTAZAPINE. [Interacting]
     Active Substance: MIRTAZAPINE
     Route: 065
     Dates: start: 20190624, end: 20190626
  10. CIPRALEX [Interacting]
     Active Substance: ESCITALOPRAM OXALATE
     Route: 065
     Dates: start: 20190719, end: 20190721

REACTIONS (2)
  - Drug interaction [Unknown]
  - Liver function test increased [Recovered/Resolved]

NARRATIVE: CASE EVENT DATE: 20190703
